FAERS Safety Report 11993359 (Version 1)
Quarter: 2016Q1

REPORT INFORMATION
  Report Type: Spontaneous
  Country: US (occurrence: US)
  Receive Date: 20160203
  Receipt Date: 20160203
  Transmission Date: 20160526
  Serious: No
  Sender: FDA-Public Use
  Company Number: US-ASTRAZENECA-2016SE09630

PATIENT
  Sex: Female

DRUGS (2)
  1. LORTAB [Interacting]
     Active Substance: ACETAMINOPHEN\HYDROCODONE BITARTRATE
     Dosage: SIX TIMES DAILY
     Route: 065
  2. MOVANTIK [Suspect]
     Active Substance: NALOXEGOL OXALATE
     Dosage: DOSE AND FREQUENCY UNKNOWN
     Route: 048

REACTIONS (1)
  - Inhibitory drug interaction [Unknown]
